FAERS Safety Report 21350609 (Version 3)
Quarter: 2022Q3

REPORT INFORMATION
  Report Type: Report from Study
  Country: US (occurrence: US)
  Receive Date: 20220919
  Receipt Date: 20220927
  Transmission Date: 20221027
  Serious: Yes (Other)
  Sender: FDA-Public Use
  Company Number: US-PFIZER INC-202201167352

PATIENT
  Age: 77 Year
  Sex: Female
  Weight: 93.44 kg

DRUGS (2)
  1. IBRANCE [Suspect]
     Active Substance: PALBOCICLIB
     Indication: Breast cancer stage IV
     Dosage: 125 MG, ONCE DAILY FOR 21 DAYS AND THEN OFF FOR 7 DAYS
     Route: 048
     Dates: start: 201912
  2. LETROZOLE [Suspect]
     Active Substance: LETROZOLE
     Dosage: UNK
     Dates: start: 201912

REACTIONS (1)
  - Cellulitis [Recovered/Resolved]
